FAERS Safety Report 12703957 (Version 1)
Quarter: 2016Q3

REPORT INFORMATION
  Report Type: Spontaneous
  Country: US (occurrence: US)
  Receive Date: 20160831
  Receipt Date: 20160831
  Transmission Date: 20161109
  Serious: Yes (Other)
  Sender: FDA-Public Use
  Company Number: US-LPDUSPRD-20160767

PATIENT
  Age: 68 Year
  Sex: Male

DRUGS (1)
  1. HYDRALAZINE HCL INJECTION, USP (0901-25) 20 MG/ML [Suspect]
     Active Substance: HYDRALAZINE HYDROCHLORIDE
     Dosage: FOR SIX MONTHS
     Route: 065

REACTIONS (1)
  - Anti-neutrophil cytoplasmic antibody positive vasculitis [Unknown]
